FAERS Safety Report 8538485-1 (Version None)
Quarter: 2012Q3

REPORT INFORMATION
  Report Type: 
  Country: None (occurrence: None)
  Receive Date: 20120726
  Receipt Date: 20120723
  Transmission Date: 20120928
  Serious: No
  Sender: FDA-Public Use
  Company Number: US-PFIZER INC-2012038510

PATIENT
  Sex: Male
  Weight: 45.4 kg

DRUGS (5)
  1. MELATONIN [Concomitant]
     Dosage: 1 MG, UNK
  2. ZOLOFT [Concomitant]
     Indication: ASPERGER'S DISORDER
     Dosage: 50 MG, DAILY
  3. GENOTROPIN [Suspect]
     Indication: GROWTH HORMONE DEFICIENCY
     Dosage: 1 MG, 1X/DAY, 7 DAYS A WEEK
     Route: 058
     Dates: start: 20111001
  4. STOOL SOFTENER [Concomitant]
     Dosage: 100-30 (UNITS NOT PROVIDED)
  5. ADDERALL XR 10 [Concomitant]
     Indication: ATTENTION DEFICIT/HYPERACTIVITY DISORDER
     Dosage: 15 MG, DAILY

REACTIONS (3)
  - DIZZINESS [None]
  - INJECTION SITE HAEMORRHAGE [None]
  - INCORRECT DOSE ADMINISTERED BY DEVICE [None]
